FAERS Safety Report 8372691-4 (Version None)
Quarter: 2012Q2

REPORT INFORMATION
  Report Type: 
  Country: None (occurrence: None)
  Receive Date: 20120521
  Receipt Date: 20120510
  Transmission Date: 20120825
  Serious: Yes (Death, Hospitalization)
  Sender: FDA-Public Use
  Company Number: US-VERTEX PHARMACEUTICALS INC.-AE-2012-003492

PATIENT
  Sex: Male
  Weight: 99.88 kg

DRUGS (8)
  1. METHADONE HCL [Concomitant]
     Route: 048
  2. HYDROXYZINE [Concomitant]
  3. VITAMIN E [Concomitant]
  4. VITAMIN D [Concomitant]
  5. RIBAVIRIN [Concomitant]
     Indication: HEPATITIS C
     Dates: start: 20120217, end: 20120228
  6. PEGASYS [Concomitant]
     Indication: HEPATITIS C
     Dates: start: 20120217, end: 20120228
  7. INCIVEK [Suspect]
     Indication: HEPATITIS C
     Route: 048
     Dates: start: 20120221, end: 20120228
  8. BENADRYL [Concomitant]

REACTIONS (2)
  - ACUTE HEPATIC FAILURE [None]
  - RENAL FAILURE [None]
